FAERS Safety Report 5062651-3 (Version None)
Quarter: 2006Q3

REPORT INFORMATION
  Report Type: 
  Country: None (occurrence: None)
  Receive Date: 20060721
  Receipt Date: 20060707
  Transmission Date: 20061208
  Serious: Yes (Other)
  Sender: FDA-Public Use
  Company Number: 2006S1000125

PATIENT
  Age: 23 Year
  Sex: Male

DRUGS (12)
  1. CUBICIN [Suspect]
     Indication: CATHETER RELATED INFECTION
     Dosage: 500 MG;Q24H;IV
     Route: 042
     Dates: start: 20050101
  2. CUBICIN [Suspect]
     Indication: STAPHYLOCOCCAL INFECTION
     Dosage: 500 MG;Q24H;IV
     Route: 042
     Dates: start: 20050101
  3. CYCLOSPORINE [Concomitant]
  4. STEROIDS [Concomitant]
  5. ACYCLOVIR [Concomitant]
  6. VANCOMYCIN [Concomitant]
  7. PIPERACILLIN SODIUM/TAZOBACTAM SODIUM [Concomitant]
  8. LINEZOLID [Concomitant]
  9. LEVOFLOXACIN [Concomitant]
  10. AMIKACIN [Concomitant]
  11. AMPHOTERICIN B [Concomitant]
  12. CASPOFUNGIN [Concomitant]

REACTIONS (4)
  - INTUBATION COMPLICATION [None]
  - LUNG INFECTION PSEUDOMONAL [None]
  - SINUSITIS [None]
  - URINARY TRACT INFECTION ENTEROCOCCAL [None]
